FAERS Safety Report 5908983-5 (Version None)
Quarter: 2008Q4

REPORT INFORMATION
  Report Type: 
  Country: None (occurrence: None)
  Receive Date: 20081006
  Receipt Date: 20080925
  Transmission Date: 20090506
  Serious: Yes (Disabling)
  Sender: FDA-Public Use
  Company Number: US-ROCHE-584975

PATIENT
  Sex: Female
  Weight: 56.5 kg

DRUGS (2)
  1. ACCUTANE [Suspect]
     Indication: ACNE
     Route: 048
     Dates: start: 20060101
  2. ACCUTANE [Suspect]
     Dosage: STRENGTH: 40 MG
     Route: 048
     Dates: start: 20080123, end: 20080615

REACTIONS (1)
  - EPIPHYSES PREMATURE FUSION [None]
